FAERS Safety Report 11937953 (Version 1)
Quarter: 2016Q1

REPORT INFORMATION
  Report Type: Report from Study
  Country: US (occurrence: US)
  Receive Date: 20160122
  Receipt Date: 20160122
  Transmission Date: 20160526
  Serious: Yes (Death, Hospitalization)
  Sender: FDA-Public Use
  Company Number: US-JNJFOC-20160109145

PATIENT
  Age: 40 Year
  Sex: Male
  Weight: 96.1 kg

DRUGS (2)
  1. APAP [Suspect]
     Active Substance: ACETAMINOPHEN
     Route: 048
  2. APAP [Suspect]
     Active Substance: ACETAMINOPHEN
     Indication: PRODUCT USED FOR UNKNOWN INDICATION
     Route: 048
     Dates: start: 20160108

REACTIONS (9)
  - Completed suicide [Fatal]
  - Thrombocytopenia [Unknown]
  - Acute kidney injury [Fatal]
  - Acute hepatic failure [Fatal]
  - Hepatic necrosis [Unknown]
  - Overdose [Fatal]
  - Brain oedema [Fatal]
  - Hepatic encephalopathy [Unknown]
  - Hypotension [Unknown]

NARRATIVE: CASE EVENT DATE: 201601
